FAERS Safety Report 9490790 (Version 1)
Quarter: 2013Q3

REPORT INFORMATION
  Report Type: Spontaneous
  Country: IT (occurrence: IT)
  Receive Date: 20130830
  Receipt Date: 20130830
  Transmission Date: 20140515
  Serious: Yes (Other)
  Sender: FDA-Public Use
  Company Number: PHHY2013IT093029

PATIENT
  Age: 55 Year
  Sex: Male

DRUGS (1)
  1. COARTEM [Suspect]
     Indication: PLASMODIUM FALCIPARUM INFECTION
     Dosage: FOR 3 DAYS
     Route: 048

REACTIONS (2)
  - Coombs positive haemolytic anaemia [Recovered/Resolved]
  - Pyrexia [Unknown]
